FAERS Safety Report 5376077-6 (Version None)
Quarter: 2007Q2

REPORT INFORMATION
  Report Type: 
  Country: None (occurrence: None)
  Receive Date: 20070628
  Receipt Date: 20070628
  Transmission Date: 20071010
  Serious: Yes (Hospitalization)
  Sender: FDA-Public Use
  Company Number: None

PATIENT
  Sex: Female

DRUGS (13)
  1. BEVACIZUMAB 10 MG/KG [Suspect]
     Dosage: D/1 + D/28 OF EACH CYCLE
     Dates: start: 20070427, end: 20070625
  2. ETOPOSIDE [Suspect]
     Dosage: DAY 1-21 OF EACH CYCLE
     Dates: start: 20070427, end: 20070625
  3. DIOVAN 160/25 [Concomitant]
  4. SINGULAIR [Concomitant]
  5. PERCO [Concomitant]
  6. NEXIUM [Concomitant]
  7. FLONASE [Concomitant]
  8. DEXAMETHASONE [Concomitant]
  9. DYNACIRC [Concomitant]
  10. ADVAIR MDI [Concomitant]
  11. LEVOXYL [Concomitant]
  12. KEPPRA [Concomitant]
  13. ZOLOFT [Concomitant]

REACTIONS (11)
  - APHASIA [None]
  - BRONCHITIS [None]
  - CANDIDIASIS [None]
  - CONFUSIONAL STATE [None]
  - DISEASE PROGRESSION [None]
  - FALL [None]
  - FATIGUE [None]
  - LOSS OF CONSCIOUSNESS [None]
  - MUSCULAR WEAKNESS [None]
  - PARTIAL SEIZURES [None]
  - THROMBOCYTOPENIA [None]
